FAERS Safety Report 10006819 (Version 2)
Quarter: 2014Q1

REPORT INFORMATION
  Report Type: Spontaneous
  Country: US (occurrence: US)
  Receive Date: 20140313
  Receipt Date: 20140313
  Transmission Date: 20141002
  Serious: Yes (Other)
  Sender: FDA-Public Use
  Company Number: US-GILEAD-2012-0065488

PATIENT
  Sex: Female

DRUGS (2)
  1. LETAIRIS [Suspect]
     Indication: COR PULMONALE CHRONIC
     Dosage: 5 MG, QD
     Route: 048
     Dates: start: 20120831
  2. TRACLEER                           /01587701/ [Concomitant]

REACTIONS (3)
  - Drug ineffective [Unknown]
  - Oxygen consumption increased [Unknown]
  - Dyspnoea [Unknown]
